FAERS Safety Report 4385593-5 (Version None)
Quarter: 2004Q2

REPORT INFORMATION
  Report Type: 
  Country: None (occurrence: None)
  Receive Date: 20040628
  Receipt Date: 20040525
  Transmission Date: 20050107
  Serious: Yes (Death)
  Sender: FDA-Public Use
  Company Number: PHRM2004FR01932

PATIENT
  Age: 89 Year
  Sex: Female
  Weight: 49 kg

DRUGS (5)
  1. EXELON [Suspect]
     Indication: MEMORY IMPAIRMENT
     Dosage: 1.5 MG, BID
     Route: 048
     Dates: start: 20040517
  2. ATARAX [Concomitant]
     Dosage: 12.5 MG/DAY
     Route: 048
  3. RISPERDAL [Suspect]
     Indication: HALLUCINATION
     Dosage: 1.5 MG/DAY
     Route: 048
     Dates: start: 20010308
  4. STILNOX [Concomitant]
     Dosage: 10 MG/DAY
     Route: 048
  5. DEROXAT [Concomitant]
     Indication: DEPRESSION
     Dosage: 20 MG/DAY
     Dates: start: 20040406

REACTIONS (1)
  - DEATH [None]
